FAERS Safety Report 8464271-7 (Version None)
Quarter: 2012Q2

REPORT INFORMATION
  Report Type: 
  Country: None (occurrence: None)
  Receive Date: 20120625
  Receipt Date: 20120618
  Transmission Date: 20120825
  Serious: Yes (Death, Hospitalization)
  Sender: FDA-Public Use
  Company Number: FR-PFIZER INC-2012147042

PATIENT
  Sex: Male

DRUGS (2)
  1. TORISEL [Suspect]
     Dosage: UNK
     Dates: start: 20090710
  2. TORISEL [Suspect]
     Indication: RENAL CANCER
     Dosage: UNK
     Dates: start: 20090612

REACTIONS (3)
  - DIABETES MELLITUS INADEQUATE CONTROL [None]
  - CARDIAC FAILURE [None]
  - LUNG DISORDER [None]
